FAERS Safety Report 26091858 (Version 1)
Quarter: 2025Q4

REPORT INFORMATION
  Report Type: Spontaneous
  Country: GB (occurrence: GB)
  Receive Date: 20251126
  Receipt Date: 20251126
  Transmission Date: 20260117
  Serious: Yes (Other)
  Sender: AUROBINDO
  Company Number: GB-MHRA-TPP28398334C5406911YC1762950419244

PATIENT
  Age: 61 Year
  Sex: Male
  Weight: 162 kg

DRUGS (10)
  1. MIRTAZAPINE [Suspect]
     Active Substance: MIRTAZAPINE
     Indication: Product used for unknown indication
     Dosage: 15 MILLIGRAM, ONCE A DAY
     Route: 065
     Dates: start: 20250701
  2. MIRTAZAPINE [Suspect]
     Active Substance: MIRTAZAPINE
     Dosage: UNK UNK, ONCE A DAY
     Route: 065
     Dates: start: 20250701
  3. AMLODIPINE [Concomitant]
     Active Substance: AMLODIPINE BESYLATE
     Indication: Ill-defined disorder
     Dosage: UNK, ONCE A DAY (TAKE ONE DAILY (FOR BLOOD PRESSURE))
     Route: 065
     Dates: start: 20250910, end: 20251008
  4. PRONTOSAN [Concomitant]
     Indication: Ill-defined disorder
     Dosage: UNK, AS DIRECTED
     Route: 065
     Dates: start: 20250929, end: 20251027
  5. URGOTUL [Concomitant]
     Indication: Ill-defined disorder
     Dosage: UNK, AS DIRECTED
     Route: 065
     Dates: start: 20250929, end: 20251027
  6. LERCANIDIPINE HYDROCHLORIDE [Concomitant]
     Active Substance: LERCANIDIPINE HYDROCHLORIDE
     Indication: Ill-defined disorder
     Dosage: UNK, ONCE A DAY
     Route: 065
     Dates: start: 20251104
  7. ATORVASTATIN [Concomitant]
     Active Substance: ATORVASTATIN
     Indication: Ill-defined disorder
     Dosage: UNK, ONCE A DAY
     Route: 065
     Dates: start: 20230926
  8. DULOXETINE [Concomitant]
     Active Substance: DULOXETINE
     Indication: Ill-defined disorder
     Dosage: UNK, ONCE A DAY
     Route: 065
     Dates: start: 20240404
  9. POLYETHYLENE GLYCOL 3350\POTASSIUM CHLORIDE\SODIUM BICARBONATE\SODIUM [Concomitant]
     Active Substance: POLYETHYLENE GLYCOL 3350\POTASSIUM CHLORIDE\SODIUM BICARBONATE\SODIUM CHLORIDE
     Indication: Ill-defined disorder
     Dosage: UNK (1 SACHET EVERY 1 TO 2 DAYS)
     Route: 065
  10. HYDROMOL [Concomitant]
     Indication: Ill-defined disorder
     Dosage: UNK, AS DIRECTED (APPLY LIBERALLY AS DIRECTED)
     Route: 065

REACTIONS (5)
  - Mood altered [Recovered/Resolved]
  - Confusional state [Recovered/Resolved]
  - Acute psychosis [Recovered/Resolved]
  - Suicidal ideation [Recovered/Resolved]
  - Agitated depression [Recovered/Resolved]

NARRATIVE: CASE EVENT DATE: 20250926
